FAERS Safety Report 5334644-X (Version None)
Quarter: 2007Q2

REPORT INFORMATION
  Report Type: 
  Country: None (occurrence: None)
  Receive Date: 20070525
  Receipt Date: 20070524
  Transmission Date: 20071010
  Serious: Yes (Hospitalization)
  Sender: FDA-Public Use
  Company Number: B0463008A

PATIENT
  Age: 33 Year
  Sex: Female
  Weight: 48 kg

DRUGS (6)
  1. PAXIL [Suspect]
     Indication: DEPRESSION
     Dosage: 10MG PER DAY
     Route: 048
     Dates: start: 20060619, end: 20060712
  2. UNSPECIFIED MEDICATION [Concomitant]
     Indication: DEPRESSION
     Route: 048
  3. VEGETAMIN A [Concomitant]
     Route: 048
     Dates: start: 20020101, end: 20060712
  4. RHYTHMY [Concomitant]
     Route: 048
     Dates: start: 20050101, end: 20060712
  5. NITRAZEPAM [Concomitant]
     Route: 048
     Dates: start: 20050101, end: 20060722
  6. DEPAS [Concomitant]
     Route: 048
     Dates: start: 20050101

REACTIONS (12)
  - ALTERED STATE OF CONSCIOUSNESS [None]
  - BRAIN OEDEMA [None]
  - CONVULSION [None]
  - HYPONATRAEMIA [None]
  - INAPPROPRIATE ANTIDIURETIC HORMONE SECRETION [None]
  - JOINT ANKYLOSIS [None]
  - LOSS OF CONSCIOUSNESS [None]
  - MYDRIASIS [None]
  - POLYURIA [None]
  - TONIC CONVULSION [None]
  - WATER INTOXICATION [None]
  - WEIGHT INCREASED [None]
